FAERS Safety Report 10279339 (Version 1)
Quarter: 2014Q3

REPORT INFORMATION
  Report Type: Spontaneous
  Country: IE (occurrence: IE)
  Receive Date: 20140707
  Receipt Date: 20140707
  Transmission Date: 20150326
  Serious: Yes (Other)
  Sender: FDA-Public Use
  Company Number: IE-BRISTOL-MYERS SQUIBB COMPANY-21134564

PATIENT
  Age: 44 Year
  Sex: Male
  Weight: 82.5 kg

DRUGS (1)
  1. ABILIFY [Suspect]
     Active Substance: ARIPIPRAZOLE
     Indication: BIPOLAR I DISORDER
     Route: 048

REACTIONS (5)
  - Libido decreased [Unknown]
  - Mania [Unknown]
  - Libido increased [Unknown]
  - Insomnia [Unknown]
  - Weight decreased [Unknown]
